FAERS Safety Report 16729431 (Version 2)
Quarter: 2020Q2

REPORT INFORMATION
  Report Type: Spontaneous
  Country: US (occurrence: US)
  Receive Date: 20190822
  Receipt Date: 20200415
  Transmission Date: 20200713
  Serious: No
  Sender: FDA-Public Use
  Company Number: US-PFIZER INC-2019354740

PATIENT
  Age: 59 Year
  Sex: Female

DRUGS (2)
  1. IBRANCE [Suspect]
     Active Substance: PALBOCICLIB
     Dosage: 100 MG, CYCLIC [TAKE 1 CAPSULE BY MOUTH DAILY FOR 3 WEEKS THEN OFF 1 WEEK]
     Route: 048
     Dates: start: 201805
  2. IBRANCE [Suspect]
     Active Substance: PALBOCICLIB
     Indication: BREAST CANCER FEMALE
     Dosage: 125 MG, CYCLIC

REACTIONS (12)
  - Onychoclasis [Unknown]
  - Chest pain [Unknown]
  - Skin disorder [Unknown]
  - Anaemia [Recovering/Resolving]
  - White blood cell count decreased [Unknown]
  - Vision blurred [Unknown]
  - Arthralgia [Unknown]
  - Musculoskeletal pain [Unknown]
  - Arthropathy [Unknown]
  - Skin swelling [Unknown]
  - Visual impairment [Unknown]
  - Ocular vascular disorder [Unknown]
